FAERS Safety Report 14568476 (Version 9)
Quarter: 2018Q2

REPORT INFORMATION
  Report Type: Spontaneous
  Country: GR (occurrence: GR)
  Receive Date: 20180223
  Receipt Date: 20180423
  Transmission Date: 20180711
  Serious: Yes (Hospitalization, Other)
  Sender: FDA-Public Use
  Company Number: GR-SA-2018SA037032

PATIENT
  Age: 72 Year

DRUGS (7)
  1. DICLOFENAC SALT NOT SPECIFIED [Suspect]
     Active Substance: DICLOFENAC
     Indication: CARDIAC FAILURE
     Route: 065
  2. CARVEDILOL. [Suspect]
     Active Substance: CARVEDILOL
     Indication: CARDIAC FAILURE
     Route: 065
  3. DICLOFENAC SODIUM. [Suspect]
     Active Substance: DICLOFENAC SODIUM
     Indication: CARDIAC FAILURE
     Route: 065
  4. AMILORIDE HYDROCHLORIDE/FUROSEMIDE [Suspect]
     Active Substance: AMILORIDE HYDROCHLORIDE\FUROSEMIDE
     Indication: CARDIAC FAILURE
     Dosage: 40 MG (FUROSEMIDE) + 5 MG (AMILORIDE) BID
     Route: 065
  5. IRBESARTAN. [Suspect]
     Active Substance: IRBESARTAN
     Indication: CARDIAC FAILURE
     Route: 065
  6. CARVEDILOL. [Suspect]
     Active Substance: CARVEDILOL
     Indication: CARDIAC FAILURE
     Route: 065
  7. OLMESARTAN MEDOXOMIL/AMLODIPINE BESILATE [Suspect]
     Active Substance: AMLODIPINE BESYLATE\OLMESARTAN MEDOXOMIL
     Indication: PRODUCT USE IN UNAPPROVED INDICATION
     Dosage: 10 MG AMLODIPINE + 20 MG OLMESARTAN
     Route: 065

REACTIONS (12)
  - Drug administration error [Unknown]
  - Hyponatraemia [Recovered/Resolved]
  - Product use issue [Unknown]
  - Product use in unapproved indication [Unknown]
  - Blood sodium increased [Unknown]
  - Orthostatic hypotension [Recovered/Resolved]
  - Hyperkalaemia [Recovered/Resolved]
  - Blood creatinine increased [Unknown]
  - Blood urea increased [Unknown]
  - Renal impairment [Recovered/Resolved]
  - Electrocardiogram T wave abnormal [Unknown]
  - Muscular weakness [Recovered/Resolved]
